FAERS Safety Report 6772119-1 (Version None)
Quarter: 2010Q2

REPORT INFORMATION
  Report Type: 
  Country: None (occurrence: None)
  Receive Date: 20100616
  Receipt Date: 20100607
  Transmission Date: 20101027
  Serious: Yes (Life-Threatening, Hospitalization, Disabling)
  Sender: FDA-Public Use
  Company Number: B0653537A

PATIENT
  Sex: Female
  Weight: 48 kg

DRUGS (4)
  1. ARIXTRA [Suspect]
     Indication: THROMBOSIS PROPHYLAXIS
     Dosage: 2.5MG PER DAY
     Route: 058
     Dates: start: 20100401, end: 20100427
  2. ROCEPHIN [Concomitant]
     Dosage: 1G PER DAY
     Route: 042
     Dates: start: 20100423, end: 20100429
  3. ANDROCUR [Concomitant]
     Dosage: 1UNIT PER DAY
     Route: 065
  4. PARACETAMOL [Concomitant]
     Dosage: 3G PER DAY
     Route: 065

REACTIONS (9)
  - ASTHENIA [None]
  - EXTENSOR PLANTAR RESPONSE [None]
  - EXTRAPYRAMIDAL DISORDER [None]
  - HYPOREFLEXIA [None]
  - PARAPLEGIA [None]
  - PROCEDURAL PAIN [None]
  - SPINAL CORD COMPRESSION [None]
  - SPINAL CORD INJURY CERVICAL [None]
  - SUBDURAL HAEMATOMA [None]
